FAERS Safety Report 22389038 (Version 1)
Quarter: 2023Q2

REPORT INFORMATION
  Report Type: Spontaneous
  Country: FR (occurrence: FR)
  Receive Date: 20230531
  Receipt Date: 20230531
  Transmission Date: 20230721
  Serious: Yes (Other)
  Sender: FDA-Public Use
  Company Number: None

PATIENT
  Age: 51 Year
  Sex: Female

DRUGS (3)
  1. CISATRACURIUM BESYLATE [Suspect]
     Active Substance: CISATRACURIUM BESYLATE
     Indication: Skin test
     Dosage: 0.02 MG/ML, SINGLE
     Route: 003
     Dates: start: 20221109
  2. ATRACURIUM BESYLATE [Suspect]
     Active Substance: ATRACURIUM BESYLATE
     Indication: Skin test
     Dosage: 0.01 MG/ML, SINGLE
     Route: 003
     Dates: start: 20221109
  3. MIVACURIUM [Suspect]
     Active Substance: MIVACURIUM
     Indication: Skin test
     Dosage: 0.002 MG/ML, SINGLE
     Route: 003
     Dates: start: 20221109

REACTIONS (1)
  - Skin test positive [Recovered/Resolved]

NARRATIVE: CASE EVENT DATE: 20221109
